FAERS Safety Report 15543337 (Version 3)
Quarter: 2021Q3

REPORT INFORMATION
  Report Type: Spontaneous
  Country: IN (occurrence: IN)
  Receive Date: 20181023
  Receipt Date: 20210816
  Transmission Date: 20211014
  Serious: Yes (Death, Hospitalization, Other)
  Sender: FDA-Public Use
  Company Number: IN-PFIZER INC-2018259260

PATIENT
  Age: 60 Year
  Sex: Male

DRUGS (5)
  1. SUTENT [Suspect]
     Active Substance: SUNITINIB MALATE
     Indication: METASTATIC RENAL CELL CARCINOMA
     Dosage: 25 MG, 1X/DAY
     Route: 048
     Dates: start: 20180220, end: 2018
  2. SUTENT [Suspect]
     Active Substance: SUNITINIB MALATE
     Dosage: 25 MG, UNK
     Route: 048
     Dates: start: 2018
  3. SUTENT [Suspect]
     Active Substance: SUNITINIB MALATE
     Dosage: 25 MG, 2X/DAY
     Route: 048
     Dates: start: 2018
  4. SUTENT [Suspect]
     Active Substance: SUNITINIB MALATE
     Dosage: 37.5 MG, UNK
     Route: 048
     Dates: start: 2018, end: 2018
  5. SUTENT [Suspect]
     Active Substance: SUNITINIB MALATE
     Dosage: 37.5 MG, CYCLIC (DAILY, 2 WEEKS ON 1 WEEK OFF)
     Route: 048
     Dates: start: 2018

REACTIONS (9)
  - Neoplasm progression [Fatal]
  - Oral mucosal blistering [Recovered/Resolved]
  - Diabetes mellitus [Unknown]
  - Haematochezia [Unknown]
  - Skin disorder [Unknown]
  - Dizziness [Unknown]
  - Haemoglobin decreased [Unknown]
  - Blister [Unknown]
  - Blood pressure abnormal [Unknown]
